FAERS Safety Report 15105710 (Version 2)
Quarter: 2018Q3

REPORT INFORMATION
  Report Type: Report from Study
  Country: US (occurrence: US)
  Receive Date: 20180704
  Receipt Date: 20180730
  Transmission Date: 20181010
  Serious: Yes (Other)
  Sender: FDA-Public Use
  Company Number: US-AMGEN-USASP2018089081

PATIENT
  Age: 58 Year
  Sex: Female

DRUGS (2)
  1. ENBREL [Suspect]
     Active Substance: ETANERCEPT
     Indication: RHEUMATOID ARTHRITIS
     Dosage: 50 MG, QWK
     Route: 065
     Dates: start: 201805, end: 2018
  2. ENBREL [Suspect]
     Active Substance: ETANERCEPT
     Dosage: 50 MG, QWK
     Route: 065
     Dates: start: 201807

REACTIONS (7)
  - Ear infection [Unknown]
  - Sinus disorder [Unknown]
  - Injection site urticaria [Unknown]
  - Arthritis [Unknown]
  - Injection site bruising [Unknown]
  - Wrist surgery [Unknown]
  - Injection site induration [Unknown]

NARRATIVE: CASE EVENT DATE: 2018
